FAERS Safety Report 9781578 (Version 1)
Quarter: 2013Q4

REPORT INFORMATION
  Report Type: Spontaneous
  Country: US (occurrence: None)
  Receive Date: 20131223
  Receipt Date: 20131223
  Transmission Date: 20140711
  Serious: Yes (Hospitalization)
  Sender: FDA-Public Use
  Company Number: None

PATIENT
  Age: 64 None
  Sex: Male
  Weight: 109.3 kg

DRUGS (2)
  1. NAPROXEN [Suspect]
     Indication: PAIN
     Route: 048
     Dates: start: 20110322, end: 20110405
  2. FUROSEMIDE [Suspect]
     Indication: OEDEMA
     Route: 048
     Dates: start: 20100629

REACTIONS (5)
  - Urine output decreased [None]
  - Renal failure acute [None]
  - Renal tubular necrosis [None]
  - Transaminases increased [None]
  - Hepatic enzyme increased [None]
